FAERS Safety Report 13192885 (Version 1)
Quarter: 2017Q1

REPORT INFORMATION
  Report Type: Spontaneous
  Country: KZ (occurrence: KZ)
  Receive Date: 20170207
  Receipt Date: 20170207
  Transmission Date: 20170428
  Serious: Yes (Other)
  Sender: FDA-Public Use
  Company Number: KZ-GLAXOSMITHKLINE-KZ2017GSK000353

PATIENT
  Age: 35 Year
  Sex: Female
  Weight: 45 kg

DRUGS (6)
  1. ZINACEF [Suspect]
     Active Substance: CEFUROXIME SODIUM
     Indication: BRONCHITIS
     Dosage: 750 MG, 1D DILUTED IN 200 ML OF PHYSIOLOGICAL
     Route: 042
     Dates: start: 20161230, end: 20170101
  2. ZINACEF [Suspect]
     Active Substance: CEFUROXIME SODIUM
     Indication: NASOPHARYNGITIS
  3. ASCORIL SYRUP [Concomitant]
     Indication: BRONCHITIS
     Dosage: 1 DF, TID, TEASPOON
     Dates: start: 20161230, end: 20170115
  4. ZINACEF [Suspect]
     Active Substance: CEFUROXIME SODIUM
     Indication: RHINITIS
  5. ASCORIL SYRUP [Concomitant]
     Indication: COUGH
  6. ZINACEF [Suspect]
     Active Substance: CEFUROXIME SODIUM
     Indication: OROPHARYNGEAL PAIN

REACTIONS (7)
  - Rheumatoid arthritis [Recovered/Resolved]
  - Oedema peripheral [Unknown]
  - Arthralgia [Unknown]
  - Joint swelling [Unknown]
  - Off label use [Unknown]
  - Suspected counterfeit product [Unknown]
  - Drug ineffective [Unknown]

NARRATIVE: CASE EVENT DATE: 20161230
